FAERS Safety Report 7529408-2 (Version None)
Quarter: 2011Q2

REPORT INFORMATION
  Report Type: 
  Country: None (occurrence: None)
  Receive Date: 20110607
  Receipt Date: 20110526
  Transmission Date: 20111010
  Serious: Yes (Other)
  Sender: FDA-Public Use
  Company Number: US-ASTRAZENECA-2011SE33115

PATIENT
  Age: 29379 Day
  Sex: Male
  Weight: 73.5 kg

DRUGS (96)
  1. AVAPRO [Concomitant]
     Dates: start: 20100407, end: 20100910
  2. DIOVAN [Concomitant]
     Dates: start: 20080808, end: 20090205
  3. ACETAMINOPHEN [Concomitant]
     Dates: start: 20090205, end: 20090507
  4. TORSEMIDE [Concomitant]
     Dates: start: 20080923, end: 20081107
  5. LASIX [Concomitant]
     Dates: start: 20080215, end: 20080221
  6. WELLBUTRIN XL [Concomitant]
     Dates: start: 20060817, end: 20070418
  7. ALPHAGAN P [Concomitant]
     Dates: start: 20060517, end: 20060731
  8. KETEK [Concomitant]
     Dates: start: 20060125, end: 20060628
  9. MAGNESIUM-POTASSIUM [Concomitant]
     Dosage: 40-40 MG DAILY
     Dates: start: 20030221, end: 20050922
  10. PULMICORT [Suspect]
     Dosage: 0.5 MG/ 2ML, 1 TWO TIMES A DAY
     Route: 055
     Dates: start: 20100413
  11. CARBIDOPA AND LEVODOPA [Concomitant]
     Dosage: 25-100 MG, FOUR TIMES A DAY
     Dates: start: 20090929, end: 20100319
  12. XOPENEX HFA [Concomitant]
     Dosage: 0,36 MG/3 ML, FOUR TIMES A DAY
     Dates: start: 20071205, end: 20090508
  13. COMBIVENT [Concomitant]
     Dosage: 103-18 MCG/ACT, AS NEEDED
     Dates: start: 20060324, end: 20060628
  14. MYSOLINE [Concomitant]
     Dates: start: 20090929, end: 20100611
  15. LOMOTIL [Concomitant]
     Dosage: 2.5 -0.025 MG, AT NIGHT AS DIRECTED
     Dates: start: 20080527, end: 20080620
  16. FINASTERIDE [Concomitant]
     Route: 048
     Dates: start: 20090929, end: 20100611
  17. FLOMAX [Concomitant]
     Dates: start: 20071205, end: 20080620
  18. TESTOSTERONE CYPIONATE [Concomitant]
     Dosage: 200 MG/ML,1 CC IM  EVERY TWO WEEKS
     Dates: start: 20050316, end: 20050922
  19. CYMBALTA [Concomitant]
     Dates: start: 20060125, end: 20060628
  20. EFFEXOR XR [Concomitant]
     Dates: start: 20050112, end: 20050623
  21. EFFEXOR XR [Concomitant]
     Dates: start: 20050623, end: 20050922
  22. OXAPROZIN [Concomitant]
     Dates: start: 20050112, end: 20051005
  23. LORAZEPAM [Concomitant]
     Dates: start: 20040421, end: 20040629
  24. ATENOLOL [Suspect]
     Route: 048
     Dates: start: 20081021, end: 20081218
  25. IPRATROPIUM BROMIDE AND ALBUTEROL SULFATE [Concomitant]
     Dosage: 0.5-2.5 MG/ 3 ML, FOUR TIMES A DAY
     Dates: start: 20100413
  26. XOPENEX HFA [Concomitant]
     Dosage: 45 MCG/ACT, 2 PUFFS 4 TIMES A DAY
     Dates: start: 20091030, end: 20100413
  27. CITALOPRAM HYDROBROMIDE [Concomitant]
     Dates: start: 20061130, end: 20070228
  28. ALLOPURINOL [Concomitant]
     Dates: start: 20090929, end: 20100611
  29. DETROL LA [Concomitant]
     Dates: start: 20081218, end: 20090507
  30. LYRICA [Concomitant]
     Dates: start: 20060821, end: 20060906
  31. TRIAMTERENE AND HYDROCHLOROTHIAZIDE [Concomitant]
     Dosage: 37.5-25 MG, EVERY MORNING
     Dates: start: 20060531, end: 20060918
  32. ZYRTEC [Concomitant]
     Dates: start: 20040121, end: 20040427
  33. ASPIRIN [Concomitant]
     Dates: start: 20021125, end: 20040719
  34. ATROVENT [Concomitant]
     Dates: start: 20060324, end: 20060628
  35. CARBIDOPA AND LEVODOPA [Concomitant]
     Dosage: 25-250 MG, THREE TIMES A DAY
     Dates: start: 20091218, end: 20100611
  36. SPIRIVA [Concomitant]
     Dosage: ONE INHALATION DAILY
     Dates: start: 20091030, end: 20100413
  37. MYSOLINE [Concomitant]
     Dates: start: 20080527, end: 20080620
  38. LOMOTIL [Concomitant]
     Dosage: 2.5 -0.025 MG, DAILY
     Dates: start: 20060628, end: 20080124
  39. CLONAZEPAM [Concomitant]
     Dates: start: 20090401, end: 20090609
  40. FLOMAX [Concomitant]
     Dates: start: 20081106, end: 20090205
  41. FUROSEMIDE [Concomitant]
     Dates: start: 20071205, end: 20080215
  42. BIAXIN [Concomitant]
     Dates: start: 20041209, end: 20050112
  43. TESTOSTERONE CYPIONATE [Concomitant]
     Dosage: 200 MG/ML,0.75 CC IM  EVERY TWO WEEKS
     Dates: start: 20061005, end: 20061130
  44. TRIAMTERENE AND HYDROCHLOROTHIAZIDE [Concomitant]
     Dosage: 37.5-25 MG, TWO TIMES A DAY
     Dates: start: 20040121, end: 20040719
  45. XALATAN [Concomitant]
     Dates: start: 20060517, end: 20060731
  46. PROMETHAZINE VC/CODEINE [Concomitant]
     Dosage: 6.25-5-10 MG/ 5ML, 5-10 CC QID PRN
     Dates: start: 20060517, end: 20060731
  47. NEXIUM [Suspect]
     Route: 048
     Dates: start: 20081008, end: 20090205
  48. LOMOTIL [Concomitant]
     Dosage: 2.5 -0.025 MG, DAILY
     Dates: start: 20090929, end: 20100319
  49. CITALOPRAM HYDROBROMIDE [Concomitant]
     Dates: start: 20071205, end: 20080620
  50. NABUMETONE [Concomitant]
     Dates: start: 20081106, end: 20081218
  51. KEFLEX [Concomitant]
     Dates: start: 20080429, end: 20080520
  52. PREDNISONE [Concomitant]
     Dosage: 6 PILLS DAYS 1-4, 5 PILLS DAYS 5-6, 4 PILLS DAYS 7-8, 3 PILLS DAYS 9-10, 2 PILLS DAYS 11-12, 1 PILL
     Dates: start: 20071221, end: 20080124
  53. FUROSEMIDE [Concomitant]
     Dates: start: 20060918, end: 20061130
  54. FUROSEMIDE [Concomitant]
     Dates: start: 20061130, end: 20070717
  55. MUCINEX [Concomitant]
     Dates: start: 20070606, end: 20070717
  56. NEXIUM [Suspect]
     Route: 048
     Dates: start: 20110311
  57. LISINOPRIL [Suspect]
     Route: 048
     Dates: start: 20071205, end: 20080527
  58. PRILOSEC [Suspect]
     Route: 048
     Dates: start: 20060125, end: 20060324
  59. PRILOSEC [Suspect]
     Route: 048
     Dates: start: 20060324, end: 20060731
  60. PRILOSEC [Suspect]
     Route: 048
     Dates: start: 20090929, end: 20100611
  61. COMBIVENT [Concomitant]
     Dosage: 103-18 MCG/ACT, 2 PUFFS 4 TIMES DAILY
     Dates: start: 20091030, end: 20091030
  62. MYSOLINE [Concomitant]
     Dates: start: 20070418, end: 20071121
  63. CITALOPRAM HYDROBROMIDE [Concomitant]
     Dates: start: 20090929, end: 20090929
  64. CITALOPRAM HYDROBROMIDE [Concomitant]
     Dates: start: 20080620, end: 20081106
  65. CLONAZEPAM [Concomitant]
     Dates: start: 20090609, end: 20090929
  66. AVODART [Concomitant]
     Dates: start: 20090518, end: 20090602
  67. BIAXIN [Concomitant]
     Dates: start: 20070606, end: 20070717
  68. MUCINEX [Concomitant]
     Dates: start: 20060125, end: 20060324
  69. LIPITOR [Concomitant]
     Dates: start: 20070228, end: 20070717
  70. AZELASTINE HCL [Concomitant]
     Dates: start: 20060731, end: 20080124
  71. TRIAMTERENE AND HYDROCHLOROTHIAZIDE [Concomitant]
     Dosage: 50-25 MG, TWO TIMES DAY
     Dates: start: 20030306, end: 20040121
  72. SULINDAC [Concomitant]
     Dates: start: 20060324, end: 20060517
  73. ALBUTEROL [Concomitant]
     Dosage: 0.63 MG/ 3ML, FOUR TIMES A DAY
     Dates: start: 20030306, end: 20050112
  74. CARVEDILOL [Concomitant]
     Dates: start: 20081218, end: 20090507
  75. TORSEMIDE [Concomitant]
     Dates: start: 20080221, end: 20080527
  76. FLOMAX [Concomitant]
     Dates: start: 20050523, end: 20051130
  77. HYDROCODONE BITARTRATE AND ACETAMINOPHEN [Concomitant]
     Dosage: 5-500 MG, 1-2 THREE TIMES A DAY, AS NEEDED
     Dates: start: 20081008, end: 20090507
  78. SIMVASTATIN [Concomitant]
     Dates: start: 20071205, end: 20080620
  79. LYRICA [Concomitant]
     Dates: start: 20060906, end: 20061130
  80. ZYRTEC [Concomitant]
     Dates: start: 20040719, end: 20050623
  81. CLARITIN [Concomitant]
     Dates: start: 20030221, end: 20040121
  82. COUMADIN [Concomitant]
     Dosage: AS DIRECTED
     Dates: start: 20040629, end: 20040907
  83. PULMICORT [Suspect]
     Dosage: AS DIRECTED
     Route: 055
     Dates: start: 20021125
  84. PRILOSEC [Suspect]
     Route: 048
     Dates: start: 20050112, end: 20051130
  85. CIPROFLOXACIN HCL [Concomitant]
     Dates: start: 20100910, end: 20101210
  86. SPIRIVA [Concomitant]
     Dosage: ONE INHALATION DAILY
     Dates: start: 20071205, end: 20091030
  87. MYSOLINE [Concomitant]
     Dates: start: 20050112, end: 20051031
  88. DIOVAN [Concomitant]
     Dates: start: 20090929, end: 20100611
  89. CALCIUM CITRATE + [Concomitant]
     Dosage: 315-200 MG-UNIT, DAILY
     Dates: start: 20090205, end: 20090507
  90. TORSEMIDE [Concomitant]
     Dosage: 1/2 TO 1 TABLET EVERY MORNING AFTER WEIGHTING AS DIRECTED BY PHYSICIAN
     Dates: start: 20081107, end: 20100611
  91. TORSEMIDE [Concomitant]
     Dosage: 1 1/2 IN AM, 1 AT NOON
     Dates: start: 20080910, end: 20080923
  92. SURFAK [Concomitant]
     Dates: start: 20080527, end: 20090507
  93. NITROGLYCERIN [Concomitant]
     Indication: CHEST PAIN
     Dosage: DISSOLVE 1 TAB EVERY 5 MINUTES UNDER TONGUE AS NEEDED
     Route: 060
     Dates: start: 20071205, end: 20080227
  94. DYAZIDE [Concomitant]
     Dosage: 37.5-25 MG DAILY
     Dates: start: 20021125, end: 20030306
  95. VIOXX [Concomitant]
     Dates: start: 20040121, end: 20040719
  96. CAPSAICIN [Concomitant]
     Dosage: AS DIRECTED
     Dates: start: 20080527, end: 20080806

REACTIONS (13)
  - COR PULMONALE CHRONIC [None]
  - FATIGUE [None]
  - TESTICULAR FAILURE [None]
  - ROSACEA [None]
  - RENAL FAILURE CHRONIC [None]
  - MUSCULOSKELETAL DISORDER [None]
  - MALAISE [None]
  - HYPERTENSIVE NEPHROPATHY [None]
  - COUGH [None]
  - SLEEP APNOEA SYNDROME [None]
  - RESTLESS LEGS SYNDROME [None]
  - OSTEOARTHRITIS [None]
  - GASTROOESOPHAGEAL REFLUX DISEASE [None]
